FAERS Safety Report 6922028-X (Version None)
Quarter: 2010Q3

REPORT INFORMATION
  Report Type: 
  Country: None (occurrence: None)
  Receive Date: 20100812
  Receipt Date: 20100802
  Transmission Date: 20110219
  Serious: Yes (Hospitalization)
  Sender: FDA-Public Use
  Company Number: US-WYE-H16679010

PATIENT
  Age: 56 Year
  Sex: Female
  Weight: 61.29 kg

DRUGS (1)
  1. ZOSYN [Suspect]
     Dosage: 4.5 G ADMINISTERED OVER 5 TO 10 MINUTES
     Dates: start: 20100718, end: 20100718

REACTIONS (6)
  - ADVERSE DRUG REACTION [None]
  - CONDITION AGGRAVATED [None]
  - DRUG ADMINISTRATION ERROR [None]
  - ELECTROCARDIOGRAM ABNORMAL [None]
  - HYPERHIDROSIS [None]
  - OXYGEN SATURATION DECREASED [None]
